FAERS Safety Report 9494210 (Version 2)
Quarter: 2013Q3

REPORT INFORMATION
  Report Type: Spontaneous
  Country: US (occurrence: US)
  Receive Date: 20130903
  Receipt Date: 20130913
  Transmission Date: 20140515
  Serious: Yes (Hospitalization)
  Sender: FDA-Public Use
  Company Number: US-AMGEN-USASP2013060779

PATIENT
  Age: 56 Year
  Sex: Male

DRUGS (1)
  1. SENSIPAR [Suspect]
     Indication: HYPERPARATHYROIDISM SECONDARY
     Dosage: 60 MG, QD
     Route: 065

REACTIONS (1)
  - Pneumonia [Unknown]
